FAERS Safety Report 15499202 (Version 1)
Quarter: 2018Q4

REPORT INFORMATION
  Report Type: Spontaneous
  Country: US (occurrence: US)
  Receive Date: 20181007
  Receipt Date: 20181007
  Transmission Date: 20190205
  Serious: No
  Sender: FDA-Public Use
  Company Number: None

PATIENT
  Age: 29 Year
  Sex: Female
  Weight: 80 kg

DRUGS (6)
  1. IRON [Concomitant]
     Active Substance: IRON
  2. VITAMIN B12 [Concomitant]
     Active Substance: CYANOCOBALAMIN
  3. ICY HOT MEDICATED NO MESS APPLICATOR [Suspect]
     Active Substance: MENTHOL
     Indication: BACK PAIN
     Dosage: ?          QUANTITY:1 LIQUID;?
     Dates: start: 20181007, end: 20181007
  4. BIOTIN [Concomitant]
     Active Substance: BIOTIN
  5. ICY HOT MEDICATED NO MESS APPLICATOR [Suspect]
     Active Substance: MENTHOL
     Indication: MUSCULOSKELETAL PAIN
     Dosage: ?          QUANTITY:1 LIQUID;?
     Dates: start: 20181007, end: 20181007
  6. PROPOLIS [Concomitant]
     Active Substance: PROPOLIS WAX

REACTIONS (1)
  - Thermal burn [None]

NARRATIVE: CASE EVENT DATE: 20181007
